FAERS Safety Report 20722011 (Version 1)
Quarter: 2022Q2

REPORT INFORMATION
  Report Type: Report from Study
  Country: US (occurrence: US)
  Receive Date: 20220418
  Receipt Date: 20220418
  Transmission Date: 20220721
  Serious: No
  Sender: FDA-Public Use
  Company Number: US-JNJFOC-20220258538

PATIENT
  Age: 76 Year
  Sex: Male
  Weight: 74.9 kg

DRUGS (2)
  1. CILTACABTAGENE AUTOLEUCEL [Suspect]
     Active Substance: CILTACABTAGENE AUTOLEUCEL
     Indication: Plasma cell myeloma
     Dosage: 0.6 X10^6 CAR-POSITIVE VIABLE T CELLS DIN/APHERESIS NO. CAR T INFUSION KH-7169
     Route: 042
     Dates: start: 20190916, end: 20190916
  2. CILTACABTAGENE AUTOLEUCEL [Suspect]
     Active Substance: CILTACABTAGENE AUTOLEUCEL
     Dosage: 0.6 X10^6 CAR-POSITIVE VIABLE T CELLS CAR T INFUSION RETREATMENT  W401221000016
     Route: 042
     Dates: start: 20210809, end: 20210809

REACTIONS (1)
  - Malignant melanoma [Not Recovered/Not Resolved]

NARRATIVE: CASE EVENT DATE: 20220209
